FAERS Safety Report 20532258 (Version 11)
Quarter: 2022Q3

REPORT INFORMATION
  Report Type: Report from Study
  Country: US (occurrence: US)
  Receive Date: 20220301
  Receipt Date: 20220921
  Transmission Date: 20221027
  Serious: Yes (Other)
  Sender: FDA-Public Use
  Company Number: NVSC2022US048455

PATIENT
  Age: 67 Year
  Sex: Female

DRUGS (3)
  1. ENTRESTO [Suspect]
     Active Substance: SACUBITRIL\VALSARTAN
     Indication: Ejection fraction decreased
     Dosage: 1 DOSAGE FORM, BID (24/26 MG)
     Route: 048
     Dates: start: 20220211
  2. ENTRESTO [Suspect]
     Active Substance: SACUBITRIL\VALSARTAN
     Indication: Cardiomyopathy
     Dosage: 0.5 DOSAGE FORM, BID
     Route: 048
     Dates: end: 202206
  3. BENADRYL [Concomitant]
     Active Substance: DIPHENHYDRAMINE HYDROCHLORIDE
     Indication: Hypersensitivity
     Dosage: UNK
     Route: 065

REACTIONS (18)
  - Haemorrhage [Recovering/Resolving]
  - Amnesia [Unknown]
  - Upper-airway cough syndrome [Unknown]
  - Oral mucosal blistering [Recovering/Resolving]
  - COVID-19 [Unknown]
  - Vaginal haemorrhage [Recovered/Resolved]
  - Dry throat [Unknown]
  - Pain in extremity [Unknown]
  - Back pain [Unknown]
  - Eyelids pruritus [Unknown]
  - Cough [Recovered/Resolved]
  - Diarrhoea [Recovered/Resolved]
  - Rash pruritic [Recovering/Resolving]
  - Urinary tract infection [Unknown]
  - Memory impairment [Not Recovered/Not Resolved]
  - Diarrhoea [Unknown]
  - Product use in unapproved indication [Unknown]
  - Wrong technique in product usage process [Unknown]

NARRATIVE: CASE EVENT DATE: 20220218
